FAERS Safety Report 19458331 (Version 4)
Quarter: 2022Q1

REPORT INFORMATION
  Report Type: Report from Study
  Country: US (occurrence: US)
  Receive Date: 20210624
  Receipt Date: 20220105
  Transmission Date: 20220424
  Serious: Yes (Hospitalization)
  Sender: FDA-Public Use
  Company Number: NVSC2021US132350

PATIENT
  Age: 41 Year
  Sex: Female

DRUGS (1)
  1. ADAKVEO [Suspect]
     Active Substance: CRIZANLIZUMAB-TMCA
     Indication: Sickle cell disease
     Dosage: UNK, QMO
     Route: 065

REACTIONS (5)
  - Pain [Unknown]
  - Sickle cell disease [Unknown]
  - Condition aggravated [Unknown]
  - Sickle cell anaemia with crisis [Unknown]
  - Drug ineffective [Unknown]
